FAERS Safety Report 15869735 (Version 1)
Quarter: 2019Q1

REPORT INFORMATION
  Report Type: Report from Study
  Country: BR (occurrence: BR)
  Receive Date: 20190125
  Receipt Date: 20190125
  Transmission Date: 20190417
  Serious: Yes (Hospitalization, Other)
  Sender: FDA-Public Use
  Company Number: BR-BIOGEN-2019BI00686080

PATIENT
  Sex: Female

DRUGS (3)
  1. AVONEX [Suspect]
     Active Substance: INTERFERON BETA-1A
     Route: 030
     Dates: start: 2009, end: 2012
  2. METICORTEN [Suspect]
     Active Substance: PREDNISONE
     Indication: MULTIPLE SCLEROSIS RELAPSE
     Route: 065
  3. AVONEX [Suspect]
     Active Substance: INTERFERON BETA-1A
     Indication: MULTIPLE SCLEROSIS
     Route: 030
     Dates: start: 1992, end: 2008

REACTIONS (13)
  - Eye pain [Not Recovered/Not Resolved]
  - Platelet count decreased [Unknown]
  - Pain [Recovered/Resolved]
  - Diabetes mellitus [Unknown]
  - Hypertension [Unknown]
  - Multiple sclerosis relapse [Recovered/Resolved]
  - Constipation [Unknown]
  - Gastrointestinal disorder [Unknown]
  - Dry eye [Not Recovered/Not Resolved]
  - Hypersensitivity [Unknown]
  - Depression suicidal [Recovered/Resolved]
  - Eosinophil count decreased [Unknown]
  - Vision blurred [Not Recovered/Not Resolved]

NARRATIVE: CASE EVENT DATE: 1992
